FAERS Safety Report 6568963-6 (Version None)
Quarter: 2010Q1

REPORT INFORMATION
  Report Type: 
  Country: None (occurrence: None)
  Receive Date: 20100201
  Receipt Date: 20100201
  Transmission Date: 20100710
  Serious: Yes (Death)
  Sender: FDA-Public Use
  Company Number: None

PATIENT
  Sex: Male
  Weight: 76.6579 kg

DRUGS (1)
  1. ERBITUX [Suspect]
     Indication: SQUAMOUS CELL CARCINOMA
     Dosage: 800 MG WEEKLY IV INFUSION
     Route: 042
     Dates: start: 20091202

REACTIONS (8)
  - ERYTHEMA [None]
  - EYE ROLLING [None]
  - FOAMING AT MOUTH [None]
  - INFUSION RELATED REACTION [None]
  - MALAISE [None]
  - PHYSICAL EXAMINATION ABNORMAL [None]
  - RESPIRATION ABNORMAL [None]
  - UNRESPONSIVE TO STIMULI [None]
